FAERS Safety Report 5908267-5 (Version None)
Quarter: 2008Q4

REPORT INFORMATION
  Report Type: 
  Country: None (occurrence: None)
  Receive Date: 20081006
  Receipt Date: 20080923
  Transmission Date: 20090506
  Serious: Yes (Life-Threatening, Hospitalization)
  Sender: FDA-Public Use
  Company Number: JP-JNJFOC-20081000232

PATIENT
  Sex: Female
  Weight: 62.4 kg

DRUGS (22)
  1. LOPEMIN [Suspect]
     Indication: DIARRHOEA
     Route: 048
  2. IRINOTECAN HCL [Suspect]
     Indication: LARGE INTESTINE CARCINOMA
     Dosage: 190MG/BODY
     Route: 042
  3. TEGAFUR/GIMERACIL/OTERACIL POTASSIUM [Suspect]
     Indication: LARGE INTESTINE CARCINOMA
     Route: 048
  4. OXYCONTIN [Suspect]
     Indication: PAIN
     Route: 048
  5. BUSCOPAN [Suspect]
  6. BUSCOPAN [Suspect]
     Indication: DRUG USE FOR UNKNOWN INDICATION
  7. MUCOSTA [Concomitant]
     Indication: GASTROINTESTINAL MUCOSAL DISORDER
     Dosage: AFTER BREAKFAST AND DINNER
     Route: 048
  8. VOLTAREN [Concomitant]
     Indication: PAIN
     Dosage: AFTER DINNER AND BREAKFAST
     Route: 048
  9. NOVAMIN [Concomitant]
     Indication: NAUSEA
     Dosage: AFTER MEALS
     Route: 048
  10. SOLDEM 3A [Concomitant]
     Route: 042
  11. SOLDEM 3A [Concomitant]
     Indication: FLUID REPLACEMENT
     Route: 042
  12. PRIMPERAN TAB [Concomitant]
     Indication: GASTROINTESTINAL MOTILITY DISORDER
     Route: 042
  13. VITAMEDIN INTRAVENOUS [Concomitant]
     Dosage: 1 BOTTLE (1 IN 1 DAY)
     Route: 042
  14. VITAMEDIN INTRAVENOUS [Concomitant]
     Indication: VITAMIN SUPPLEMENTATION
     Dosage: 1 BOTTLE DAILY
     Route: 042
  15. SODIUM CHLORIDE [Concomitant]
     Indication: FLUID REPLACEMENT
     Route: 042
  16. ASCORBIC ACID [Concomitant]
     Route: 042
  17. ASCORBIC ACID [Concomitant]
     Indication: VITAMIN SUPPLEMENTATION
     Route: 042
  18. GLUCOSE [Concomitant]
     Route: 042
  19. GLUCOSE [Concomitant]
     Indication: BLOOD GLUCOSE DECREASED
     Dosage: BEFORE BREAKFAST, AT BEDTIME
     Route: 042
  20. INTRAVENOUS NUTRIENTS [Concomitant]
     Route: 042
  21. INTRAVENOUS NUTRIENTS [Concomitant]
     Indication: NUTRITIONAL SUPPORT
     Route: 042
  22. NASEA [Concomitant]
     Indication: PROPHYLAXIS
     Route: 042

REACTIONS (3)
  - GASTRIC ILEUS [None]
  - LOWER GASTROINTESTINAL HAEMORRHAGE [None]
  - SEPSIS [None]
